FAERS Safety Report 9859523 (Version 2)
Quarter: 2014Q2

REPORT INFORMATION
  Report Type: Report from Study
  Country: JP (occurrence: JP)
  Receive Date: 20140131
  Receipt Date: 20140402
  Transmission Date: 20141212
  Serious: Yes (Other)
  Sender: FDA-Public Use
  Company Number: JP-TAKEDA-2014TJP000983

PATIENT
  Age: 79 Year
  Sex: Male
  Weight: 55 kg

DRUGS (8)
  1. ALOGLIPTIN [Suspect]
     Indication: TYPE 2 DIABETES MELLITUS
     Dosage: 6.25 MG, QD
     Route: 048
     Dates: start: 20110114
  2. TAKEPRON OD [Concomitant]
     Dosage: 15 MG , 1 DAY
     Route: 048
  3. SEIBULE [Concomitant]
     Indication: TYPE 2 DIABETES MELLITUS
     Dosage: 100 MG, 1 DAY
     Route: 048
  4. DIOVAN [Concomitant]
     Dosage: 160 MG, 1 DAY
     Route: 048
  5. ADALAT L [Concomitant]
     Dosage: 40 MG, 1DAY
     Route: 048
  6. PREDONINE                          /00016201/ [Concomitant]
     Dosage: 5 MG, 1 DAY
     Route: 048
  7. NARCARICIN [Concomitant]
     Dosage: 50 MG, 1 DAY
     Route: 048
  8. HALCION [Concomitant]
     Dosage: 0.25 MG, 1 DAY
     Route: 048

REACTIONS (2)
  - Atrioventricular block first degree [Unknown]
  - Large intestine polyp [Unknown]
